FAERS Safety Report 20384704 (Version 1)
Quarter: 2022Q1

REPORT INFORMATION
  Report Type: Spontaneous
  Country: US (occurrence: US)
  Receive Date: 20220127
  Receipt Date: 20220127
  Transmission Date: 20220423
  Serious: No
  Sender: FDA-Public Use
  Company Number: US-ALLERGAN-2104110US

PATIENT
  Sex: Female

DRUGS (1)
  1. BOTOX COSMETIC [Suspect]
     Active Substance: ONABOTULINUMTOXINA
     Indication: Skin wrinkling
     Dosage: UNK, SINGLE
     Dates: start: 202012, end: 202012

REACTIONS (5)
  - Pain [Recovered/Resolved]
  - Anxiety [Recovered/Resolved]
  - Sinusitis [Recovered/Resolved]
  - Injection site pruritus [Recovered/Resolved]
  - Headache [Recovered/Resolved]
